FAERS Safety Report 10203911 (Version 1)
Quarter: 2014Q2

REPORT INFORMATION
  Report Type: Spontaneous
  Country: FR (occurrence: FR)
  Receive Date: 20140529
  Receipt Date: 20140529
  Transmission Date: 20141212
  Serious: Yes (Other)
  Sender: FDA-Public Use
  Company Number: FR-ELI_LILLY_AND_COMPANY-FR201405007180

PATIENT
  Age: 30 Year
  Sex: Female

DRUGS (4)
  1. ZYPREXA VELOTAB [Suspect]
     Indication: BIPOLAR DISORDER
     Dosage: 5 MG, QD
     Route: 065
     Dates: start: 201312
  2. ZYPREXA VELOTAB [Suspect]
     Dosage: 2.5 MG, QD
     Route: 065
  3. LAMICTAL [Concomitant]
     Dosage: 75 MG, BID
     Route: 065
  4. PAROXETINE [Concomitant]
     Dosage: UNK, UNKNOWN
     Route: 065

REACTIONS (3)
  - Rheumatoid arthritis [Unknown]
  - Wrong technique in drug usage process [Unknown]
  - Depression [Unknown]
